FAERS Safety Report 18821901 (Version 1)
Quarter: 2021Q1

REPORT INFORMATION
  Report Type: Spontaneous
  Country: BR (occurrence: BR)
  Receive Date: 20210202
  Receipt Date: 20210202
  Transmission Date: 20210419
  Serious: Yes (Hospitalization, Other)
  Sender: FDA-Public Use
  Company Number: BR-SUN PHARMACEUTICAL INDUSTRIES LTD-2021R1-278370

PATIENT
  Sex: Male
  Weight: 2.75 kg

DRUGS (3)
  1. ASA [Suspect]
     Active Substance: ASPIRIN
     Indication: MITRAL VALVE DISEASE
     Dosage: 100 MILLIGRAM, DAILY
     Route: 064
  2. BENZATHINE PENICILLIN G [Suspect]
     Active Substance: PENICILLIN G BENZATHINE
     Indication: MITRAL VALVE DISEASE
     Dosage: 1200000 UI, EVERY 21 DAYS
     Route: 064
  3. CARVEDILOL. [Suspect]
     Active Substance: CARVEDILOL
     Indication: MITRAL VALVE DISEASE
     Dosage: 3125 MILLIGRAM, 12/12H
     Route: 064

REACTIONS (3)
  - Foetal exposure during pregnancy [Unknown]
  - Foetal distress syndrome [Recovered/Resolved]
  - Bradycardia [Recovered/Resolved]
